FAERS Safety Report 18544733 (Version 2)
Quarter: 2020Q4

REPORT INFORMATION
  Report Type: Spontaneous
  Country: US (occurrence: US)
  Receive Date: 20201125
  Receipt Date: 20201228
  Transmission Date: 20210114
  Serious: No
  Sender: FDA-Public Use
  Company Number: US-JNJFOC-20201127184

PATIENT
  Age: 43 Year
  Sex: Female
  Weight: 113.5 kg

DRUGS (5)
  1. TREMFYA [Suspect]
     Active Substance: GUSELKUMAB
  2. LISINOPRIL. [Concomitant]
     Active Substance: LISINOPRIL
     Indication: PRODUCT USED FOR UNKNOWN INDICATION
  3. TREMFYA [Suspect]
     Active Substance: GUSELKUMAB
  4. PAXIL [Concomitant]
     Active Substance: PAROXETINE HYDROCHLORIDE
     Indication: PRODUCT USED FOR UNKNOWN INDICATION
  5. TREMFYA [Suspect]
     Active Substance: GUSELKUMAB
     Indication: PSORIASIS
     Route: 065

REACTIONS (3)
  - Needle issue [Unknown]
  - Product dose omission issue [Unknown]
  - Device malfunction [Unknown]

NARRATIVE: CASE EVENT DATE: 20201115
